FAERS Safety Report 4676699-1 (Version None)
Quarter: 2005Q2

REPORT INFORMATION
  Report Type: 
  Country: None (occurrence: None)
  Receive Date: 20050527
  Receipt Date: 20050308
  Transmission Date: 20051028
  Serious: Yes (Disabling)
  Sender: FDA-Public Use
  Company Number: 2005CG00596

PATIENT
  Age: 24349 Day
  Sex: Male
  Weight: 75 kg

DRUGS (3)
  1. NAROPIN [Suspect]
     Indication: LOCAL ANAESTHESIA
     Route: 053
     Dates: start: 20040308, end: 20040308
  2. NAROPIN [Suspect]
     Route: 053
     Dates: start: 20040308, end: 20040308
  3. CLONIDINE [Concomitant]
     Indication: LOCAL ANAESTHESIA
     Route: 053
     Dates: start: 20040308, end: 20040308

REACTIONS (2)
  - OPTIC ATROPHY [None]
  - SCOTOMA [None]
